FAERS Safety Report 15006936 (Version 1)
Quarter: 2018Q2

REPORT INFORMATION
  Report Type: Spontaneous
  Country: US (occurrence: US)
  Receive Date: 20180526
  Receipt Date: 20180526
  Transmission Date: 20180711
  Serious: Yes (Hospitalization)
  Sender: FDA-Public Use
  Company Number: None

PATIENT
  Age: 23 Year
  Sex: Female
  Weight: 63.9 kg

DRUGS (3)
  1. PROPRANOLOL [Concomitant]
     Active Substance: PROPRANOLOL HYDROCHLORIDE
  2. OLLY WOMEN^S DAILY MULTIVITAMIN [Concomitant]
  3. DUOLOXETINE [Suspect]
     Active Substance: DULOXETINE
     Indication: DEPRESSION
     Route: 048
     Dates: start: 20180212, end: 20180427

REACTIONS (3)
  - Withdrawal syndrome [None]
  - Myoclonus [None]
  - Seizure [None]

NARRATIVE: CASE EVENT DATE: 20180423
